FAERS Safety Report 5826351-1 (Version None)
Quarter: 2008Q3

REPORT INFORMATION
  Report Type: 
  Country: None (occurrence: None)
  Receive Date: 20080724
  Receipt Date: 20080709
  Transmission Date: 20090109
  Serious: Yes (Other)
  Sender: FDA-Public Use
  Company Number: 19755

PATIENT
  Age: 10 Year
  Sex: Male
  Weight: 46.8 kg

DRUGS (3)
  1. METHOTREXATE [Suspect]
     Dosage: 16.5 MG 2/WK SC
     Route: 058
  2. METHOTREXATE [Suspect]
     Dosage: 50 MG WEEKLY SC
     Route: 058
     Dates: start: 20061108
  3. ETANERCEPT [Suspect]
     Dosage: 11.2 MG 2/WK SC
     Route: 058
     Dates: start: 20030917

REACTIONS (7)
  - ANGER [None]
  - DISCOMFORT [None]
  - HIP ARTHROPLASTY [None]
  - IMPAIRED SELF-CARE [None]
  - MENTAL DISORDER [None]
  - PAIN [None]
  - WHEELCHAIR USER [None]
